FAERS Safety Report 8384443-X (Version None)
Quarter: 2012Q2

REPORT INFORMATION
  Report Type: 
  Country: None (occurrence: None)
  Receive Date: 20120524
  Receipt Date: 20120514
  Transmission Date: 20120825
  Serious: Yes (Congenital Anomaly)
  Sender: FDA-Public Use
  Company Number: GB-VIIV HEALTHCARE LIMITED-A0978627A

PATIENT

DRUGS (2)
  1. EPZICOM [Suspect]
     Indication: HIV INFECTION
     Dosage: 1TAB PER DAY
     Route: 064
     Dates: start: 20101213
  2. VIRAMUNE [Suspect]
     Indication: HIV INFECTION
     Dosage: 400MGD PER DAY
     Route: 064

REACTIONS (4)
  - NEURAL TUBE DEFECT [None]
  - MENINGOMYELOCELE [None]
  - FOETAL EXPOSURE DURING PREGNANCY [None]
  - CEREBRAL VENTRICLE DILATATION [None]
